FAERS Safety Report 18962237 (Version 1)
Quarter: 2021Q1

REPORT INFORMATION
  Report Type: Spontaneous
  Country: US (occurrence: US)
  Receive Date: 20210302
  Receipt Date: 20210302
  Transmission Date: 20210420
  Serious: No
  Sender: FDA-Public Use
  Company Number: None

PATIENT
  Age: 72 Year
  Sex: Male

DRUGS (1)
  1. PENTOXIFYLLINE (PENTOXIFYLLINE 400MG TAB,SA) [Suspect]
     Active Substance: PENTOXIFYLLINE
     Indication: DIABETES MELLITUS
     Route: 048
     Dates: start: 20200113, end: 20200601

REACTIONS (2)
  - Tremor [None]
  - Drug intolerance [None]

NARRATIVE: CASE EVENT DATE: 20200601
